FAERS Safety Report 5228960-X (Version None)
Quarter: 2007Q1

REPORT INFORMATION
  Report Type: 
  Country: None (occurrence: None)
  Receive Date: 20061201
  Receipt Date: 20061005
  Transmission Date: 20070707
  Serious: No
  Sender: FDA-Public Use
  Company Number: US200610001265

PATIENT
  Sex: Female

DRUGS (3)
  1. CYMBALTA [Suspect]
     Indication: INSOMNIA
     Dosage: 60 MG,
     Dates: start: 20060801
  2. PROZAC [Suspect]
     Indication: DEPRESSION
  3. ADDERALL (AMFETAMINE ASPARATATE SULFATE, DEXAMFETAMINE SACCHARATE) [Concomitant]

REACTIONS (9)
  - COORDINATION ABNORMAL [None]
  - DRUG INEFFECTIVE [None]
  - INCREASED APPETITE [None]
  - JOINT SWELLING [None]
  - MULTIPLE SCLEROSIS [None]
  - MUSCLE SPASMS [None]
  - MYALGIA [None]
  - PAIN [None]
  - WEIGHT INCREASED [None]
